FAERS Safety Report 8780143 (Version 1)
Quarter: 2012Q4

REPORT INFORMATION
  Report Type: Spontaneous
  Country: US (occurrence: None)
  Receive Date: 20120831
  Receipt Date: 20120831
  Transmission Date: 20130627
  Serious: No
  Sender: FDA-Public Use
  Company Number: None

PATIENT
  Age: 70 Year
  Sex: Male
  Weight: 111.6 kg

DRUGS (2)
  1. BOCEPREVIR [Suspect]
     Route: 048
     Dates: start: 20120409, end: 20120608
  2. RIBAVIRIN [Suspect]
     Route: 048
     Dates: start: 20120216, end: 20120608

REACTIONS (2)
  - Anaemia [None]
  - Dyspnoea [None]
